FAERS Safety Report 10515065 (Version 1)
Quarter: 2014Q4

REPORT INFORMATION
  Report Type: Spontaneous
  Country: US (occurrence: US)
  Receive Date: 20141014
  Receipt Date: 20141014
  Transmission Date: 20150528
  Serious: No
  Sender: FDA-Public Use
  Company Number: US-BAXTER-2014BAX058343

PATIENT
  Age: 42 Year
  Sex: Female
  Weight: 54 kg

DRUGS (2)
  1. GAMMAGARD LIQUID [Suspect]
     Active Substance: HUMAN IMMUNOGLOBULIN G
     Indication: IMMUNODEFICIENCY COMMON VARIABLE
     Dosage: 7.5 OR 8.0 GRAMS
     Route: 058
  2. GAMMAGARD LIQUID [Suspect]
     Active Substance: HUMAN IMMUNOGLOBULIN G
     Dosage: 7.5 OR 8.0 GRAMS
     Route: 058
     Dates: start: 201401

REACTIONS (3)
  - Hypersensitivity [Unknown]
  - Fatigue [Unknown]
  - Influenza like illness [Unknown]
